FAERS Safety Report 11375158 (Version 2)
Quarter: 2015Q3

REPORT INFORMATION
  Report Type: Spontaneous
  Country: IT (occurrence: IT)
  Receive Date: 20150813
  Receipt Date: 20150814
  Transmission Date: 20151125
  Serious: Yes (Other)
  Sender: FDA-Public Use
  Company Number: IT-TEVA-583816ACC

PATIENT
  Age: 58 Year
  Sex: Female
  Weight: 44 kg

DRUGS (3)
  1. VIEKIRAX - 12.5MG/75MG/50MG COMPRESSA RIVESTITA CON FILM - ABBVIE LTD [Interacting]
     Active Substance: OMBITASVIR\PARITAPREVIR\RITONAVIR
     Indication: CHRONIC HEPATITIS C
     Dosage: 2 DF DAILY
     Route: 048
     Dates: start: 20150707, end: 20150730
  2. RIBAVIRIN. [Suspect]
     Active Substance: RIBAVIRIN
     Indication: CHRONIC HEPATITIS C
     Dosage: 800 MG DAILY
     Route: 048
     Dates: start: 20150707, end: 20150730
  3. EXVIERA - 250 MG COMPRESSA RIVESTITA CON FILM - ABBVIE LTD [Interacting]
     Active Substance: DASABUVIR
     Indication: CHRONIC HEPATITIS C
     Dosage: 2 DF DAILY
     Route: 048
     Dates: start: 20150707, end: 20150730

REACTIONS (6)
  - Nausea [Recovering/Resolving]
  - Aspartate aminotransferase increased [Recovering/Resolving]
  - Blood bilirubin increased [Recovering/Resolving]
  - Decreased appetite [Recovering/Resolving]
  - Alanine aminotransferase increased [Recovering/Resolving]
  - Drug interaction [Recovering/Resolving]

NARRATIVE: CASE EVENT DATE: 20150726
